FAERS Safety Report 4521957-4 (Version None)
Quarter: 2004Q4

REPORT INFORMATION
  Report Type: 
  Country: None (occurrence: None)
  Receive Date: 20041207
  Receipt Date: 20041124
  Transmission Date: 20050328
  Serious: Yes (Hospitalization, Other)
  Sender: FDA-Public Use
  Company Number: USA040977936

PATIENT
  Age: 80 Year
  Sex: Female
  Weight: 57 kg

DRUGS (6)
  1. FORTEO [Suspect]
     Indication: OSTEOPOROSIS
     Dosage: 20 UG/1 DAY
     Dates: start: 20031201
  2. SEREVENT [Concomitant]
  3. FLOVENT [Concomitant]
  4. NASONEX [Concomitant]
  5. ZETIA [Concomitant]
  6. ... [Concomitant]

REACTIONS (8)
  - CONTUSION [None]
  - DEVICE MALFUNCTION [None]
  - FALL [None]
  - GAIT DISTURBANCE [None]
  - NECK PAIN [None]
  - PHARMACEUTICAL PRODUCT COMPLAINT [None]
  - SPINAL FRACTURE [None]
  - TOOTH FRACTURE [None]
